FAERS Safety Report 10782605 (Version 1)
Quarter: 2015Q1

REPORT INFORMATION
  Report Type: Spontaneous
  Country: US (occurrence: None)
  Receive Date: 20150209
  Receipt Date: 20150209
  Transmission Date: 20150721
  Serious: Yes (Life-Threatening, Hospitalization)
  Sender: FDA-Public Use
  Company Number: None

PATIENT
  Age: 63 Year
  Sex: Male
  Weight: 84.1 kg

DRUGS (1)
  1. INSULIN [Suspect]
     Active Substance: INSULIN NOS
     Indication: DIABETES MELLITUS
     Dosage: ML
     Dates: start: 20101217

REACTIONS (10)
  - Hepatocellular carcinoma [None]
  - Acute kidney injury [None]
  - Hypokalaemia [None]
  - Inappropriate schedule of drug administration [None]
  - Hypoglycaemia [None]
  - Accidental overdose [None]
  - Post procedural complication [None]
  - Haematocrit decreased [None]
  - No therapeutic response [None]
  - Haemoglobin decreased [None]

NARRATIVE: CASE EVENT DATE: 20141104
